FAERS Safety Report 12212905 (Version 2)
Quarter: 2018Q2

REPORT INFORMATION
  Report Type: Spontaneous
  Country: US (occurrence: US)
  Receive Date: 20160328
  Receipt Date: 20180607
  Transmission Date: 20180711
  Serious: No
  Sender: FDA-Public Use
  Company Number: US-JNJFOC-20160221875

PATIENT
  Sex: Female
  Weight: 72.58 kg

DRUGS (2)
  1. IMODIUM A-D [Suspect]
     Active Substance: LOPERAMIDE HYDROCHLORIDE
     Indication: DIARRHOEA
     Route: 048
     Dates: start: 20160221
  2. IMODIUM A-D [Suspect]
     Active Substance: LOPERAMIDE HYDROCHLORIDE
     Route: 048

REACTIONS (6)
  - Product storage error [Unknown]
  - Expired product administered [Unknown]
  - Physical product label issue [Unknown]
  - Dysgeusia [Unknown]
  - Incorrect dose administered [Unknown]
  - Off label use [Unknown]
